FAERS Safety Report 18738937 (Version 4)
Quarter: 2021Q3

REPORT INFORMATION
  Report Type: Report from Study
  Country: US (occurrence: US)
  Receive Date: 20210114
  Receipt Date: 20210720
  Transmission Date: 20211014
  Serious: No
  Sender: FDA-Public Use
  Company Number: NVSC2021US007505

PATIENT
  Sex: Female

DRUGS (1)
  1. COSENTYX [Suspect]
     Active Substance: SECUKINUMAB
     Indication: PSORIATIC ARTHROPATHY
     Dosage: 300 MG, 300MG Q WEEKLY X 5 WEEKS THEN
     Route: 058
     Dates: start: 20201210

REACTIONS (2)
  - Accidental exposure to product [Unknown]
  - Headache [Unknown]
